FAERS Safety Report 8358088-1 (Version None)
Quarter: 2012Q2

REPORT INFORMATION
  Report Type: 
  Country: None (occurrence: None)
  Receive Date: 20120514
  Receipt Date: 20120430
  Transmission Date: 20120825
  Serious: Yes (Hospitalization)
  Sender: FDA-Public Use
  Company Number: PHHY2012SG040008

PATIENT
  Age: 35 Year
  Sex: Female

DRUGS (3)
  1. SULFASALAZINE [Concomitant]
     Indication: BEHCET'S SYNDROME
  2. CYCLOSPORINE [Suspect]
     Indication: BEHCET'S SYNDROME
  3. PREDNISOLONE [Concomitant]
     Indication: BEHCET'S SYNDROME

REACTIONS (7)
  - ABDOMINAL PAIN [None]
  - OVARIAN DISORDER [None]
  - HAEMOGLOBIN DECREASED [None]
  - OVARIAN VEIN THROMBOSIS [None]
  - ABDOMINAL PAIN LOWER [None]
  - ABDOMINAL TENDERNESS [None]
  - GASTROINTESTINAL INFLAMMATION [None]
